FAERS Safety Report 5618643-6 (Version None)
Quarter: 2008Q1

REPORT INFORMATION
  Report Type: 
  Country: None (occurrence: None)
  Receive Date: 20080205
  Receipt Date: 20080205
  Transmission Date: 20080703
  Serious: Yes (Other)
  Sender: FDA-Public Use
  Company Number: None

PATIENT
  Age: 47 Year
  Sex: Female
  Weight: 52.1637 kg

DRUGS (3)
  1. ALLEGRA [Suspect]
     Indication: COUGH
     Dosage: PO
     Route: 048
     Dates: start: 20070315, end: 20070831
  2. ALLEGRA [Suspect]
     Indication: MULTIPLE ALLERGIES
     Dosage: PO
     Route: 048
     Dates: start: 20070315, end: 20070831
  3. ALLEGRA [Suspect]
     Indication: POSTNASAL DRIP
     Dosage: PO
     Route: 048
     Dates: start: 20070315, end: 20070831

REACTIONS (7)
  - CONDITION AGGRAVATED [None]
  - CONVULSION [None]
  - COUGH [None]
  - DIARRHOEA [None]
  - MUSCLE SPASMS [None]
  - MUSCLE TIGHTNESS [None]
  - WHEEZING [None]
